FAERS Safety Report 9870245 (Version 1)
Quarter: 2014Q1

REPORT INFORMATION
  Report Type: Spontaneous
  Country: US (occurrence: US)
  Receive Date: 20140205
  Receipt Date: 20140205
  Transmission Date: 20141002
  Serious: Yes (Hospitalization)
  Sender: FDA-Public Use
  Company Number: US-PFIZER INC-2014032670

PATIENT
  Age: 58 Year
  Sex: Female
  Weight: 77.1 kg

DRUGS (2)
  1. PROTONIX [Suspect]
     Indication: MUSCULOSKELETAL DISCOMFORT
     Dosage: 40 MG, 1X/DAY
  2. LANTUS [Concomitant]
     Indication: DIABETES MELLITUS
     Dosage: UNK, 2X/DAY

REACTIONS (2)
  - Arthropathy [Unknown]
  - Off label use [Unknown]
